FAERS Safety Report 8381584-8 (Version None)
Quarter: 2012Q2

REPORT INFORMATION
  Report Type: 
  Country: None (occurrence: None)
  Receive Date: 20120523
  Receipt Date: 20120522
  Transmission Date: 20120825
  Serious: Yes (Death, Hospitalization)
  Sender: FDA-Public Use
  Company Number: US-AMGEN-USASP2011042913

PATIENT
  Age: 56 Year
  Sex: Male
  Weight: 84 kg

DRUGS (1)
  1. NPLATE [Suspect]
     Indication: IDIOPATHIC THROMBOCYTOPENIC PURPURA
     Dosage: 1 MCG/KG, ONE TIME DOSE
     Route: 058
     Dates: start: 20110602, end: 20110602

REACTIONS (5)
  - PLATELET PRODUCTION DECREASED [None]
  - POSTOPERATIVE WOUND INFECTION [None]
  - ADENOCARCINOMA [None]
  - RESPIRATORY FAILURE [None]
  - INFECTION [None]
